FAERS Safety Report 5147021-1 (Version None)
Quarter: 2006Q4

REPORT INFORMATION
  Report Type: 
  Country: None (occurrence: None)
  Receive Date: 20061109
  Receipt Date: 20061027
  Transmission Date: 20070319
  Serious: Yes (Death, Life-Threatening, Hospitalization, Other)
  Sender: FDA-Public Use
  Company Number: US-ELI_LILLY_AND_COMPANY-US200610005312

PATIENT
  Age: 20 Year
  Sex: Male

DRUGS (2)
  1. STRATTERA [Suspect]
     Dates: start: 20040101
  2. PAXIL [Concomitant]
     Dosage: UNK, UNK
     Dates: start: 20040601

REACTIONS (3)
  - COMA [None]
  - INJURY ASPHYXIATION [None]
  - SUICIDE ATTEMPT [None]
